FAERS Safety Report 22810421 (Version 2)
Quarter: 2025Q2

REPORT INFORMATION
  Report Type: Spontaneous
  Country: US (occurrence: US)
  Receive Date: 20230810
  Receipt Date: 20250611
  Transmission Date: 20250716
  Serious: No
  Sender: SANOFI AVENTIS
  Company Number: US-SA-SAC20230810000389

PATIENT
  Age: 44 Year
  Sex: Female

DRUGS (23)
  1. DUPIXENT [Suspect]
     Active Substance: DUPILUMAB
     Indication: Dermatitis atopic
     Dosage: 300 MG, QOW
     Route: 058
     Dates: start: 20230728
  2. DUPIXENT [Suspect]
     Active Substance: DUPILUMAB
     Dosage: 300 MG, QOW
     Route: 058
  3. CETROTIDE [Concomitant]
     Active Substance: CETRORELIX ACETATE
  4. DIAZEPAM [Concomitant]
     Active Substance: DIAZEPAM
  5. ESTRACE [Concomitant]
     Active Substance: ESTRADIOL
  6. ESTRADIOL [Concomitant]
     Active Substance: ESTRADIOL
  7. GONAL F RFF [Concomitant]
  8. IBUPROFEN [Concomitant]
     Active Substance: IBUPROFEN
  9. LIDOCAINE [Concomitant]
     Active Substance: LIDOCAINE
  10. LUPRON [Concomitant]
     Active Substance: LEUPROLIDE ACETATE
  11. MEDROL [Concomitant]
     Active Substance: METHYLPREDNISOLONE
  12. MENOPUR [Concomitant]
     Active Substance: FOLLITROPIN\LUTEINIZING HORMONE
  13. NOVAREL [Concomitant]
     Active Substance: CHORIOGONADOTROPIN ALFA
  14. PROGESTERONE [Concomitant]
     Active Substance: PROGESTERONE
  15. PROMETHAZINE [Concomitant]
     Active Substance: PROMETHAZINE HYDROCHLORIDE
  16. TROSPIUM CHLORIDE [Concomitant]
     Active Substance: TROSPIUM CHLORIDE
  17. REPRONEX [Concomitant]
     Active Substance: FOLLITROPIN\LUTEINIZING HORMONE
  18. TETRACYCLINE [Concomitant]
     Active Substance: TETRACYCLINE
  19. VALIUM [Concomitant]
     Active Substance: DIAZEPAM
  20. METHYLPREDNISOLONE [Concomitant]
     Active Substance: METHYLPREDNISOLONE
  21. NITROFURANTOIN [Concomitant]
     Active Substance: NITROFURANTOIN
  22. CHORIONIC GONADOTROPIN [Concomitant]
     Active Substance: CHORIOGONADOTROPIN ALFA
  23. HYDROCODONE BITARTRATE AND ACETAMINOPHEN [Concomitant]
     Active Substance: ACETAMINOPHEN\HYDROCODONE BITARTRATE

REACTIONS (2)
  - Sleep disorder [Recovered/Resolved]
  - Product dose omission in error [Unknown]
